FAERS Safety Report 4309464-5 (Version None)
Quarter: 2004Q1

REPORT INFORMATION
  Report Type: 
  Country: None (occurrence: None)
  Receive Date: 20040301
  Receipt Date: 20040219
  Transmission Date: 20041129
  Serious: Yes (Other)
  Sender: FDA-Public Use
  Company Number: PERI00204000493

PATIENT
  Age: 73 Year
  Sex: Female
  Weight: 80 kg

DRUGS (1)
  1. COVERSYL (PERINDOPRIL) [Suspect]
     Indication: HYPERTENSION
     Dosage: 2 MG QD PO
     Route: 048
     Dates: start: 20030701, end: 20040209

REACTIONS (3)
  - ABDOMINAL PAIN [None]
  - GAMMA-GLUTAMYLTRANSFERASE INCREASED [None]
  - HEPATIC ENZYME INCREASED [None]
